FAERS Safety Report 10862314 (Version 1)
Quarter: 2015Q1

REPORT INFORMATION
  Report Type: Report from Study
  Country: BE (occurrence: BE)
  Receive Date: 20150224
  Receipt Date: 20150224
  Transmission Date: 20150721
  Serious: Yes (Other)
  Sender: FDA-Public Use
  Company Number: BE-ABBVIE-14P-013-1285121-00

PATIENT
  Sex: Male

DRUGS (7)
  1. DUODOPA [Suspect]
     Active Substance: CARBIDOPA\LEVODOPA
     Dosage: AM DOSE=1.2ML, CD=2.3ML/H FOR 16HRS AND ED=0.7ML
     Route: 050
     Dates: start: 20141223, end: 20150216
  2. DUODOPA [Suspect]
     Active Substance: CARBIDOPA\LEVODOPA
     Dosage: AM DOSE=4ML, CD=3.3ML/H FOR 16HRS AND ED=0.8ML
     Route: 050
     Dates: start: 20080401, end: 20080601
  3. DUODOPA [Suspect]
     Active Substance: CARBIDOPA\LEVODOPA
     Dosage: AM DOSE=1.2ML, CD=2.5ML/H FOR 16HRS AND ED=0.7ML
     Route: 050
     Dates: start: 20141222, end: 20141223
  4. DUODOPA [Suspect]
     Active Substance: CARBIDOPA\LEVODOPA
     Dosage: DOSAGE CONTINUOUSLY MONITORED AND ADJUSTED
     Route: 050
     Dates: start: 20080601, end: 20140703
  5. DUODOPA [Suspect]
     Active Substance: CARBIDOPA\LEVODOPA
     Dosage: AM DOSE=1.2ML, CD=2.5ML/H FOR 16HRS, ED=0.7ML
     Route: 050
     Dates: start: 20140703, end: 20141222
  6. DUODOPA [Suspect]
     Active Substance: CARBIDOPA\LEVODOPA
     Indication: PARKINSON^S DISEASE
     Route: 050
     Dates: start: 20080303, end: 20080401
  7. DUODOPA [Suspect]
     Active Substance: CARBIDOPA\LEVODOPA
     Dosage: AM DOSE= 1.2ML, CONTIN DOSE= 1.9ML/H DURING 16HRS, EXTRA DOSE=0.7ML
     Route: 050
     Dates: start: 20150216

REACTIONS (6)
  - Mantle cell lymphoma recurrent [Unknown]
  - Confusional state [Recovering/Resolving]
  - Dyskinesia [Recovering/Resolving]
  - Mantle cell lymphoma [Unknown]
  - Weight decreased [Unknown]
  - Decreased appetite [Unknown]

NARRATIVE: CASE EVENT DATE: 2011
